FAERS Safety Report 8975970 (Version 1)
Quarter: 2012Q4

REPORT INFORMATION
  Report Type: 
  Country: FR (occurrence: FR)
  Receive Date: 20121219
  Receipt Date: 20121219
  Transmission Date: 20130627
  Serious: Yes (Other)
  Sender: FDA-Public Use
  Company Number: FR-ARROW-2012-22188

PATIENT

DRUGS (1)
  1. SODIUM VALPROATE [Suspect]
     Indication: EPILEPSY
     Dosage: UNK

REACTIONS (2)
  - Epilepsy [Unknown]
  - Drug ineffective [Unknown]
